FAERS Safety Report 22161297 (Version 1)
Quarter: 2023Q1

REPORT INFORMATION
  Report Type: Spontaneous
  Country: US (occurrence: US)
  Receive Date: 20230331
  Receipt Date: 20230331
  Transmission Date: 20230418
  Serious: Yes (Other)
  Sender: FDA-Public Use
  Company Number: US-002147023-NVSC2023US070531

PATIENT

DRUGS (12)
  1. CARBOPLATIN [Suspect]
     Active Substance: CARBOPLATIN
     Indication: Gastric cancer
     Dosage: DOSE LEVEL 1 CYCLIC (2 AREA UNDER CURVE) (DAYS 3, 10, 17)
     Route: 065
  2. CARBOPLATIN [Suspect]
     Active Substance: CARBOPLATIN
     Dosage: DOSE LEVEL 2 CYCLIC (2 AREA UNDER CURVE) (DAYS 3, 10, 17)
     Route: 065
  3. CARBOPLATIN [Suspect]
     Active Substance: CARBOPLATIN
     Dosage: DOSE LEVEL 3 CYCLIC (2 AREA UNDER CURVE) (DAYS 3, 10, 17)
     Route: 065
  4. CARBOPLATIN [Suspect]
     Active Substance: CARBOPLATIN
     Dosage: DOSE LEVEL 4 CYCLIC (2 AREA UNDER CURVE) (DAYS 3, 10, 17)
     Route: 065
  5. PACLITAXEL [Suspect]
     Active Substance: PACLITAXEL
     Indication: Gastric cancer
     Dosage: DOSE LEVEL 1, 80 MG/M2, CYCLIC (DAYS 3, 10, 17)
     Route: 065
  6. PACLITAXEL [Suspect]
     Active Substance: PACLITAXEL
     Dosage: DOSE LEVEL 2, 80 MG/M2, CYCLIC (DAYS 3, 10, 17)
     Route: 065
  7. PACLITAXEL [Suspect]
     Active Substance: PACLITAXEL
     Dosage: DOSE LEVEL 3, 80 MG/M2, CYCLIC (DAYS 3, 10, 17)
     Route: 065
  8. PACLITAXEL [Suspect]
     Active Substance: PACLITAXEL
     Dosage: DOSE LEVEL 4, 80 MG/M2, CYCLIC (DAYS 3, 10, 17)
     Route: 065
  9. VELIPARIB [Suspect]
     Active Substance: VELIPARIB
     Indication: Gastric cancer
     Dosage: DOSE LEVEL 1, 50 MG, BID (DAYS 1-5, 8-12, 15-19)
     Route: 065
  10. VELIPARIB [Suspect]
     Active Substance: VELIPARIB
     Dosage: DOSE LEVEL 2, 100 MG, BID (DAYS 1-5, 8-12, 15-19)
     Route: 065
  11. VELIPARIB [Suspect]
     Active Substance: VELIPARIB
     Dosage: DOSE LEVEL 3, 150 MG, BID (DAYS 1-5, 8-12, 15-19)
     Route: 065
  12. VELIPARIB [Suspect]
     Active Substance: VELIPARIB
     Dosage: DOSE LEVEL 4, 200 MG, BID (DAYS 1-5, 8-12, 15-19)
     Route: 065

REACTIONS (4)
  - Gastric cancer [Unknown]
  - Malignant neoplasm progression [Unknown]
  - Product use in unapproved indication [Unknown]
  - Therapy partial responder [Unknown]
